FAERS Safety Report 4788558-4 (Version None)
Quarter: 2005Q4

REPORT INFORMATION
  Report Type: 
  Country: None (occurrence: None)
  Receive Date: 20051005
  Receipt Date: 20051005
  Transmission Date: 20060501
  Serious: Yes (Hospitalization)
  Sender: FDA-Public Use
  Company Number: None

PATIENT
  Age: 80 Year
  Sex: Female

DRUGS (11)
  1. HYDROCHLOROTHIAZIDE [Suspect]
     Indication: HYPERTENSION
     Dosage: 12.5 MG PO QD
     Route: 048
     Dates: start: 20050212, end: 20050224
  2. LIPITOR [Concomitant]
  3. ASPIRIN [Concomitant]
  4. THEOPHYLLINE [Concomitant]
  5. AMOLIDIPINE [Concomitant]
  6. FOSINOPRIL SODIUM [Concomitant]
  7. ALBUTEROL [Concomitant]
  8. ADVAIR DISKUS 100/50 [Concomitant]
  9. PRED TAPER [Concomitant]
  10. HUMULIN 70/30 [Concomitant]
  11. INDAPAMIDE [Concomitant]

REACTIONS (2)
  - MUSCLE SPASMS [None]
  - TREMOR [None]
